FAERS Safety Report 9409590 (Version 1)
Quarter: 2013Q3

REPORT INFORMATION
  Report Type: Spontaneous
  Country: US (occurrence: US)
  Receive Date: 20130719
  Receipt Date: 20130719
  Transmission Date: 20140515
  Serious: Yes (Other)
  Sender: FDA-Public Use
  Company Number: PHEH2013US015148

PATIENT
  Age: 57 Year
  Sex: Female
  Weight: 65.76 kg

DRUGS (1)
  1. FEMARA [Suspect]
     Dosage: UNK UKN, UNK

REACTIONS (3)
  - Lung disorder [Unknown]
  - Fatigue [Unknown]
  - Diarrhoea [Unknown]
